FAERS Safety Report 10654094 (Version 1)
Quarter: 2014Q4

REPORT INFORMATION
  Report Type: Spontaneous
  Country: US (occurrence: US)
  Receive Date: 20141216
  Receipt Date: 20141216
  Transmission Date: 20150529
  Serious: Yes (Other)
  Sender: FDA-Public Use
  Company Number: US-BAYER-2014-181987

PATIENT
  Sex: Female

DRUGS (1)
  1. BETASERON [Suspect]
     Active Substance: INTERFERON BETA-1B

REACTIONS (5)
  - Hemiparesis [None]
  - Gait disturbance [None]
  - Drug ineffective [None]
  - Multiple sclerosis relapse [None]
  - Multiple sclerosis [None]
